FAERS Safety Report 12970619 (Version 1)
Quarter: 2016Q4

REPORT INFORMATION
  Report Type: Spontaneous
  Country: BR (occurrence: BR)
  Receive Date: 20161123
  Receipt Date: 20161123
  Transmission Date: 20170207
  Serious: Yes (Other)
  Sender: FDA-Public Use
  Company Number: PHHY2016BR156325

PATIENT
  Age: 10 Year
  Sex: Male
  Weight: 43 kg

DRUGS (1)
  1. BROMOCRIPTINE [Suspect]
     Active Substance: BROMOCRIPTINE
     Indication: PROLACTIN-PRODUCING PITUITARY TUMOUR
     Dosage: 1.25 MG, QD
     Route: 065

REACTIONS (2)
  - Migraine [Recovered/Resolved]
  - Prolactin-producing pituitary tumour [Recovered/Resolved]
